FAERS Safety Report 9119217 (Version 5)
Quarter: 2013Q1

REPORT INFORMATION
  Report Type: Spontaneous
  Country: GB (occurrence: GB)
  Receive Date: 20130121
  Receipt Date: 20130315
  Transmission Date: 20140127
  Serious: Yes (Hospitalization)
  Sender: FDA-Public Use
  Company Number: GB-ABBOTT-12P-167-1013678-00

PATIENT
  Age: 52 None
  Sex: Male
  Weight: 111 kg

DRUGS (2)
  1. HUMIRA [Suspect]
     Indication: RHEUMATOID ARTHRITIS
     Route: 042
  2. HUMIRA [Suspect]
     Indication: DRUG THERAPY

REACTIONS (16)
  - Malaise [Unknown]
  - Infection [Unknown]
  - Streptococcal infection [Unknown]
  - Compartment syndrome [Unknown]
  - Renal disorder [Unknown]
  - Immunosuppression [Unknown]
  - Viral infection [Unknown]
  - Cardiac disorder [Unknown]
  - Nasopharyngitis [Unknown]
  - Infection [Unknown]
  - Multi-organ failure [Unknown]
  - Fatigue [Unknown]
  - Insomnia [Unknown]
  - Lethargy [Recovered/Resolved]
  - Feeling abnormal [Unknown]
  - Agitation [Recovered/Resolved]
